FAERS Safety Report 24174157 (Version 2)
Quarter: 2024Q3

REPORT INFORMATION
  Report Type: Spontaneous
  Country: GB (occurrence: GB)
  Receive Date: 20240805
  Receipt Date: 20240813
  Transmission Date: 20241017
  Serious: No
  Sender: MYLAN
  Company Number: GB-MYLANLABS-2024M1062606

PATIENT
  Sex: Male

DRUGS (1)
  1. CLOZARIL [Suspect]
     Active Substance: CLOZAPINE
     Indication: Schizoaffective disorder
     Dosage: UNK
     Route: 048
     Dates: start: 20240703

REACTIONS (1)
  - Off label use [Unknown]
